FAERS Safety Report 6538647-9 (Version None)
Quarter: 2010Q1

REPORT INFORMATION
  Report Type: 
  Country: None (occurrence: None)
  Receive Date: 20100115
  Receipt Date: 20100112
  Transmission Date: 20100710
  Serious: Yes (Death)
  Sender: FDA-Public Use
  Company Number: BE-BIOGENIDEC-2009BI041442

PATIENT
  Age: 46 Year
  Sex: Female

DRUGS (13)
  1. TYSABRI [Suspect]
     Indication: RELAPSING-REMITTING MULTIPLE SCLEROSIS
     Route: 042
     Dates: start: 20090324, end: 20091204
  2. REMERGON [Concomitant]
  3. SERETIDE [Concomitant]
  4. SPIRIVA [Concomitant]
  5. LYSOMUCIL [Concomitant]
  6. IBRUPROFEN [Concomitant]
  7. EMCONCOR [Concomitant]
  8. PANTOMED [Concomitant]
  9. XANAX [Concomitant]
  10. EVISTA [Concomitant]
  11. STEOCAR [Concomitant]
  12. SEROQUEL [Concomitant]
  13. D-CURE [Concomitant]

REACTIONS (1)
  - COMPLETED SUICIDE [None]
